FAERS Safety Report 10120767 (Version 1)
Quarter: 2014Q2

REPORT INFORMATION
  Report Type: Spontaneous
  Country: US (occurrence: US)
  Receive Date: 20140425
  Receipt Date: 20140425
  Transmission Date: 20141212
  Serious: Yes (Other)
  Sender: FDA-Public Use
  Company Number: US-GLAXOSMITHKLINE-A1070315A

PATIENT
  Age: 63 Year
  Sex: Female

DRUGS (10)
  1. BENLYSTA [Suspect]
     Indication: SYSTEMIC LUPUS ERYTHEMATOSUS
     Dosage: 400MG MONTHLY
     Dates: start: 201310
  2. PLAQUENIL [Concomitant]
  3. SYNTHROID [Concomitant]
  4. SALAGEN [Concomitant]
  5. VITAMIN D [Concomitant]
  6. DIAZEPAM [Concomitant]
  7. FLONASE [Concomitant]
  8. MOUTHWASH [Concomitant]
     Indication: STOMATITIS
  9. LAXATIVE [Concomitant]
  10. UNKNOWN MEDICATION [Concomitant]

REACTIONS (5)
  - CSF test abnormal [Recovered/Resolved]
  - Headache [Not Recovered/Not Resolved]
  - Asthenia [Not Recovered/Not Resolved]
  - Performance status decreased [Unknown]
  - Drug administration error [Unknown]
